FAERS Safety Report 9092224 (Version 1)
Quarter: 2013Q1

REPORT INFORMATION
  Report Type: Report from Study
  Country: US (occurrence: US)
  Receive Date: 20130201
  Receipt Date: 20130201
  Transmission Date: 20140127
  Serious: No
  Sender: FDA-Public Use
  Company Number: US-ABBOTT-12P-163-1022645-00

PATIENT
  Age: 43 None
  Sex: Female
  Weight: 63.56 kg

DRUGS (8)
  1. HUMIRA [Suspect]
     Indication: CROHN^S DISEASE
  2. HUMIRA [Suspect]
     Dates: start: 2012, end: 2012
  3. HUMIRA [Suspect]
  4. ATENOLOL [Concomitant]
     Indication: HEART RATE INCREASED
  5. TRAZODONE [Concomitant]
     Indication: SLEEP DISORDER THERAPY
  6. ZOFRAN [Concomitant]
     Indication: NAUSEA
     Dosage: PRN
  7. MS CONTIN [Concomitant]
     Indication: BONE PAIN
  8. HYDROCODONE [Concomitant]
     Indication: BONE PAIN
     Dosage: PRN

REACTIONS (7)
  - Device malfunction [Recovered/Resolved]
  - Wrong technique in drug usage process [Recovered/Resolved]
  - Pain in extremity [Not Recovered/Not Resolved]
  - Injection site haemorrhage [Recovered/Resolved]
  - Device malfunction [Not Recovered/Not Resolved]
  - Wrong technique in drug usage process [Not Recovered/Not Resolved]
  - Wrong technique in drug usage process [Not Recovered/Not Resolved]
